FAERS Safety Report 24532291 (Version 2)
Quarter: 2024Q4

REPORT INFORMATION
  Report Type: Spontaneous
  Country: US (occurrence: US)
  Receive Date: 20241022
  Receipt Date: 20241105
  Transmission Date: 20250114
  Serious: Yes (Other)
  Sender: SAGENT PHARMACEUTICALS
  Company Number: US-SAGENT PHARMACEUTICALS-2024SAG000154

PATIENT

DRUGS (12)
  1. METHYLPREDNISOLONE ACETATE [Suspect]
     Active Substance: METHYLPREDNISOLONE ACETATE
     Indication: Product used for unknown indication
     Dosage: UNK
     Route: 065
  2. LIDOCAINE HYDROCHLORIDE [Suspect]
     Active Substance: LIDOCAINE HYDROCHLORIDE
     Indication: Product used for unknown indication
     Dosage: UNK
     Route: 065
  3. BUPIVACAINE [Suspect]
     Active Substance: BUPIVACAINE
     Indication: Product used for unknown indication
     Dosage: UNK
     Route: 065
  4. FENTANYL [Suspect]
     Active Substance: FENTANYL
     Indication: Product used for unknown indication
     Dosage: UNK
     Route: 065
  5. DIPHTHERIA AND TETANUS TOXOIDS AND ACELLULAR PERTUSSIS VACCINE ADSORBE [Suspect]
     Active Substance: DIPHTHERIA AND TETANUS TOXOIDS AND ACELLULAR PERTUSSIS VACCINE ADSORBED
     Indication: Steroid withdrawal syndrome
     Dosage: UNK, 0.5 ML
     Route: 065
     Dates: start: 20210611
  6. AMLODIPINE + BENAZEPRIL HCL [Concomitant]
     Indication: Product used for unknown indication
     Dosage: 10-40 MG
     Route: 048
  7. BACLOFEN [Concomitant]
     Active Substance: BACLOFEN
     Indication: Product used for unknown indication
     Dosage: 20 MILLIGRAM, QHS 1-2 TABLETS
     Route: 048
  8. FISH OIL [Concomitant]
     Active Substance: FISH OIL
     Indication: Product used for unknown indication
     Dosage: 1000 MILLIGRAM, BID
     Route: 048
  9. LEVOMEFOLIC ACID [Concomitant]
     Active Substance: LEVOMEFOLIC ACID
     Indication: Product used for unknown indication
     Dosage: 680 MICROGRAM, QD
     Route: 065
  10. VITAMIN D3 [Concomitant]
     Active Substance: CHOLECALCIFEROL
     Indication: Product used for unknown indication
     Dosage: 50 MICROGRAM, QD 50 2,000 UNITS
  11. MODERNA COVID-19 VACCINE [Concomitant]
     Active Substance: ELASOMERAN
     Indication: COVID-19
     Dosage: UNK; FIRST DOSE
     Dates: start: 20210623
  12. MODERNA COVID-19 VACCINE [Concomitant]
     Active Substance: ELASOMERAN
     Dosage: UNK; SECOND DOSE
     Dates: start: 20210721

REACTIONS (13)
  - Anaphylactic shock [Unknown]
  - Bundle branch block left [Unknown]
  - Cognitive disorder [Unknown]
  - Nervous system disorder [Unknown]
  - Injury [Unknown]
  - Steroid withdrawal syndrome [Unknown]
  - Blood thyroid stimulating hormone decreased [Unknown]
  - Hypoacusis [Unknown]
  - Ventricular extrasystoles [Unknown]
  - Type 2 diabetes mellitus [Unknown]
  - Hypergammaglobulinaemia [Unknown]
  - Hypertension [Unknown]
  - Wrong technique in product usage process [Unknown]

NARRATIVE: CASE EVENT DATE: 20210611
